FAERS Safety Report 7724648-1 (Version None)
Quarter: 2011Q3

REPORT INFORMATION
  Report Type: 
  Country: None (occurrence: None)
  Receive Date: 20110829
  Receipt Date: 20110811
  Transmission Date: 20111222
  Serious: Yes (Other)
  Sender: FDA-Public Use
  Company Number: 2011MA011778

PATIENT
  Age: 28 Year
  Sex: Female

DRUGS (1)
  1. FEVERALL [Suspect]

REACTIONS (3)
  - ACUTE GENERALISED EXANTHEMATOUS PUSTULOSIS [None]
  - TOXIC SKIN ERUPTION [None]
  - LEUKOCYTOCLASTIC VASCULITIS [None]
